FAERS Safety Report 21810282 (Version 1)
Quarter: 2023Q1

REPORT INFORMATION
  Report Type: Spontaneous
  Country: GB (occurrence: GB)
  Receive Date: 20230103
  Receipt Date: 20230103
  Transmission Date: 20230418
  Serious: Yes (Death, Life-Threatening, Other)
  Sender: FDA-Public Use
  Company Number: None

PATIENT
  Age: 60 Year
  Sex: Female

DRUGS (2)
  1. CLARITHROMYCIN [Interacting]
     Active Substance: CLARITHROMYCIN
     Indication: Infection
     Dosage: 500 MILLIGRAM, BID
     Route: 065
  2. NEORAL [Interacting]
     Active Substance: CYCLOSPORINE
     Indication: Renal transplant
     Dosage: 50 MILLIGRAM, BID
     Route: 065
     Dates: start: 20001229

REACTIONS (5)
  - Nephropathy toxic [Fatal]
  - Renal failure [Not Recovered/Not Resolved]
  - Immunosuppressant drug level increased [Unknown]
  - Potentiating drug interaction [Unknown]
  - Product monitoring error [Unknown]

NARRATIVE: CASE EVENT DATE: 20221007
